FAERS Safety Report 4711992-5 (Version None)
Quarter: 2005Q3

REPORT INFORMATION
  Report Type: 
  Country: None (occurrence: None)
  Receive Date: 20050711
  Receipt Date: 20050711
  Transmission Date: 20060218
  Serious: Yes (Hospitalization)
  Sender: FDA-Public Use
  Company Number: None

PATIENT
  Sex: Female
  Weight: 61.6892 kg

DRUGS (7)
  1. CLONIDINE [Suspect]
     Indication: HYPERTENSION
     Dosage: 0.1 MG BID
  2. INDAPAMIDE [Suspect]
     Dosage: 2.5 MG QD
  3. ALBUTEROL [Concomitant]
  4. DOCUSATE NA [Concomitant]
  5. FELODIPINE [Concomitant]
  6. FLUNISOLIDE NASAL [Concomitant]
  7. LACTULOSE [Concomitant]

REACTIONS (2)
  - DIZZINESS [None]
  - HYPONATRAEMIA [None]
